FAERS Safety Report 8151484-7 (Version None)
Quarter: 2012Q1

REPORT INFORMATION
  Report Type: 
  Country: None (occurrence: None)
  Receive Date: 20120220
  Receipt Date: 20120215
  Transmission Date: 20120608
  Serious: Yes (Hospitalization)
  Sender: FDA-Public Use
  Company Number: US-ROCHE-1040669

PATIENT
  Sex: Male
  Weight: 105.33 kg

DRUGS (15)
  1. TARCEVA [Suspect]
     Indication: NON-SMALL CELL LUNG CANCER
     Route: 048
     Dates: start: 20111221
  2. CARBOPLATIN [Suspect]
     Indication: NON-SMALL CELL LUNG CANCER
     Route: 042
     Dates: start: 20110921
  3. METFORMIN HCL [Concomitant]
     Indication: DIABETES MELLITUS
     Dates: start: 20110711
  4. DURAGESIC-100 [Concomitant]
     Indication: ARTHRALGIA
  5. PERCOCET [Concomitant]
     Indication: BACK PAIN
     Dosage: 10 TO 500 MG
     Dates: start: 20111214
  6. NAPROXEN [Concomitant]
     Indication: BACK PAIN
     Dates: start: 20080101
  7. PERCOCET [Concomitant]
     Indication: ARTHRALGIA
  8. CELEXA [Concomitant]
     Indication: DEPRESSION
     Dates: start: 20110711
  9. LISINOPRIL [Concomitant]
     Indication: HYPERTENSION
     Dates: start: 20090101
  10. DOCETAXEL [Suspect]
     Indication: NON-SMALL CELL LUNG CANCER
     Route: 042
     Dates: start: 20110921
  11. ZOFRAN [Concomitant]
     Indication: NAUSEA
     Dates: start: 20111006
  12. PROAIR HFA [Concomitant]
     Indication: DYSPNOEA
     Dates: start: 20100101
  13. WELLBUTRIN [Concomitant]
     Indication: EX-TOBACCO USER
     Dates: start: 20110912
  14. AVASTIN [Suspect]
     Indication: NON-SMALL CELL LUNG CANCER
     Route: 042
     Dates: start: 20110921
  15. DURAGESIC-100 [Concomitant]
     Indication: BACK PAIN
     Dates: start: 20111214

REACTIONS (1)
  - CHRONIC OBSTRUCTIVE PULMONARY DISEASE [None]
